FAERS Safety Report 8119032-5 (Version None)
Quarter: 2012Q1

REPORT INFORMATION
  Report Type: 
  Country: None (occurrence: None)
  Receive Date: 20120207
  Receipt Date: 20120123
  Transmission Date: 20120608
  Serious: Yes (Other)
  Sender: FDA-Public Use
  Company Number: US-WATSON-2012-00998

PATIENT
  Sex: Male

DRUGS (3)
  1. DARVOCET [Suspect]
     Indication: PAIN MANAGEMENT
     Dosage: UNK
     Route: 048
  2. PROPOXYPHENE HCL AND ACETAMINOPHEN [Suspect]
     Indication: PAIN MANAGEMENT
     Dosage: UNK
     Route: 048
  3. DARVON [Suspect]
     Indication: PAIN MANAGEMENT
     Dosage: UNK
     Route: 048

REACTIONS (1)
  - CORONARY ARTERY DISEASE [None]
